FAERS Safety Report 24146817 (Version 1)
Quarter: 2024Q3

REPORT INFORMATION
  Report Type: Report from Study
  Country: US (occurrence: US)
  Receive Date: 20240729
  Receipt Date: 20240729
  Transmission Date: 20241017
  Serious: Yes (Hospitalization)
  Sender: AMNEAL
  Company Number: US-AMNEAL PHARMACEUTICALS-2024-AMRX-02664

PATIENT
  Age: 81 Year
  Sex: Male
  Weight: 79.38 kg

DRUGS (5)
  1. CARBIDOPA\LEVODOPA [Suspect]
     Active Substance: CARBIDOPA\LEVODOPA
     Indication: Parkinson^s disease
     Dosage: (36.25-145MG) TAKE 2 CAPSULES FOUR TIMES A DAY AND 1 CAPSULE EVERY NIGHT AT BEDTIME
     Route: 048
  2. CARBIDOPA\LEVODOPA [Suspect]
     Active Substance: CARBIDOPA\LEVODOPA
     Dosage: (36.25-145MG) 2 CAPSULES, 4 /DAY
     Route: 048
     Dates: start: 20230328
  3. CARBIDOPA\LEVODOPA [Suspect]
     Active Substance: CARBIDOPA\LEVODOPA
     Dosage: (36.25-145MG) TAKE 2 CAPSULES FOUR TIMES A DAY AND 1 CAPSULE AT BEDTIME
     Route: 048
     Dates: start: 20231116
  4. BOTOX [Concomitant]
     Active Substance: ONABOTULINUMTOXINA
     Indication: Dystonia
     Dosage: RIGHT PIRIFORMIS MUSCLE WAS INJECTED WITH A TOTAL OF 200 UNITS IN 1 SIDE UNDER EMG GUIDANCE. RIGHT T
     Route: 065
  5. NEUPRO [Concomitant]
     Active Substance: ROTIGOTINE
     Indication: Parkinson^s disease
     Dosage: UNK
     Route: 065

REACTIONS (1)
  - Fall [Unknown]

NARRATIVE: CASE EVENT DATE: 20240524
